FAERS Safety Report 20796950 (Version 3)
Quarter: 2023Q1

REPORT INFORMATION
  Report Type: Report from Study
  Country: US (occurrence: US)
  Receive Date: 20220506
  Receipt Date: 20230201
  Transmission Date: 20230417
  Serious: Yes (Other)
  Sender: FDA-Public Use
  Company Number: US-NOVARTISPH-NVSC2022US103008

PATIENT
  Age: 76 Year
  Sex: Male

DRUGS (4)
  1. JADENU [Suspect]
     Active Substance: DEFERASIROX
     Indication: Haemochromatosis
     Dosage: 360 MG, QD
     Route: 048
     Dates: start: 20220421
  2. JADENU [Suspect]
     Active Substance: DEFERASIROX
     Indication: Red blood cell transfusion
     Dosage: 1080 MG, QD
     Route: 048
     Dates: start: 20220423, end: 20221024
  3. JADENU [Suspect]
     Active Substance: DEFERASIROX
     Indication: Myelodysplastic syndrome
     Dosage: 1 DOSAGE FORM, TID
     Route: 065
  4. DACOGEN [Concomitant]
     Active Substance: DECITABINE
     Indication: Product used for unknown indication
     Dosage: UNK
     Route: 065

REACTIONS (5)
  - Atrial fibrillation [Unknown]
  - Neoplasm malignant [Unknown]
  - Blood iron increased [Unknown]
  - Incorrect dose administered [Unknown]
  - Product packaging issue [Unknown]

NARRATIVE: CASE EVENT DATE: 20220429
